FAERS Safety Report 23833987 (Version 2)
Quarter: 2024Q2

REPORT INFORMATION
  Report Type: Spontaneous
  Country: US (occurrence: US)
  Receive Date: 20240509
  Receipt Date: 20240525
  Transmission Date: 20240716
  Serious: Yes (Hospitalization)
  Sender: FDA-Public Use
  Company Number: US-TEVA-VS-3193053

PATIENT
  Age: 68 Year
  Sex: Female

DRUGS (4)
  1. LISINOPRIL [Suspect]
     Active Substance: LISINOPRIL
     Indication: Hypertension
     Route: 065
  2. LISINOPRIL [Suspect]
     Active Substance: LISINOPRIL
     Indication: Hypertension
     Route: 065
  3. AMILORIDE [Suspect]
     Active Substance: AMILORIDE
     Indication: Hypertension
     Route: 065
  4. FUROSEMIDE [Concomitant]
     Active Substance: FUROSEMIDE
     Indication: Hyperkalaemia
     Route: 065

REACTIONS (4)
  - Acute kidney injury [Recovering/Resolving]
  - Hypoaldosteronism [Unknown]
  - Paraesthesia [Unknown]
  - Hyperkalaemia [Recovered/Resolved]
